FAERS Safety Report 6984966-1 (Version None)
Quarter: 2010Q3

REPORT INFORMATION
  Report Type: 
  Country: None (occurrence: None)
  Receive Date: 20100915
  Receipt Date: 20100908
  Transmission Date: 20110219
  Serious: Yes (Other)
  Sender: FDA-Public Use
  Company Number: US-BAYER-201030324NA

PATIENT
  Age: 39 Year
  Sex: Female
  Weight: 72 kg

DRUGS (4)
  1. AVELOX [Suspect]
     Indication: SINUSITIS
     Dosage: AS USED: 400 MG  UNIT DOSE: 400 MG
     Route: 048
     Dates: start: 20100712, end: 20100720
  2. SYMBICORT [Concomitant]
     Indication: PRODUCT USED FOR UNKNOWN INDICATION
     Dates: start: 20100709
  3. VENTOLIN [Concomitant]
     Indication: PRODUCT USED FOR UNKNOWN INDICATION
     Dates: start: 20100709
  4. THYROXIN [Concomitant]
     Indication: PRODUCT USED FOR UNKNOWN INDICATION
     Dates: start: 20100709

REACTIONS (1)
  - NO ADVERSE EVENT [None]
